FAERS Safety Report 5366970-2 (Version None)
Quarter: 2007Q2

REPORT INFORMATION
  Report Type: 
  Country: None (occurrence: None)
  Receive Date: 20070619
  Receipt Date: 20070608
  Transmission Date: 20071010
  Serious: Yes (Other)
  Sender: FDA-Public Use
  Company Number: GXKR2007BR05039

PATIENT
  Age: 43 Year
  Sex: Male
  Weight: 87 kg

DRUGS (1)
  1. CAFFEINE+CARISOPRODOL+DICLOFENAC+PARACETAMOL [Suspect]
     Indication: ARTHRALGIA
     Dosage: 1 TABLET TID, ORAL
     Route: 048
     Dates: start: 20070601, end: 20070606

REACTIONS (1)
  - LOSS OF CONSCIOUSNESS [None]
